FAERS Safety Report 24326706 (Version 1)
Quarter: 2024Q3

REPORT INFORMATION
  Report Type: Report from Study
  Country: CN (occurrence: CN)
  Receive Date: 20240917
  Receipt Date: 20240917
  Transmission Date: 20241017
  Serious: Yes (Death)
  Sender: ROCHE
  Company Number: CN-ROCHE-10000075752

PATIENT
  Age: 77 Year
  Sex: Female

DRUGS (1)
  1. GLOFITAMAB [Suspect]
     Active Substance: GLOFITAMAB
     Indication: Diffuse large B-cell lymphoma
     Route: 042
     Dates: start: 20240530

REACTIONS (4)
  - White blood cell count decreased [Fatal]
  - Platelet count decreased [Fatal]
  - Pyrexia [Unknown]
  - Liver function test decreased [Fatal]
